FAERS Safety Report 24237775 (Version 1)
Quarter: 2024Q3

REPORT INFORMATION
  Report Type: Spontaneous
  Country: IT (occurrence: IT)
  Receive Date: 20240822
  Receipt Date: 20240822
  Transmission Date: 20241017
  Serious: Yes (Other)
  Sender: PFIZER
  Company Number: IT-BAYER-2024A113839

PATIENT
  Age: 68 Year
  Sex: Male

DRUGS (6)
  1. PANTOPRAZOLE [Suspect]
     Active Substance: PANTOPRAZOLE
     Dosage: UNK
     Route: 065
  2. ASPIRIN [Suspect]
     Active Substance: ASPIRIN
     Dosage: UNK
     Route: 065
  3. FUROSEMIDE\SPIRONOLACTONE [Suspect]
     Active Substance: FUROSEMIDE\SPIRONOLACTONE
     Dosage: UNK
     Route: 065
  4. PROLUTON [Suspect]
     Active Substance: HYDROXYPROGESTERONE CAPROATE
     Dosage: UNK
     Route: 065
  5. BISOPROLOL [Suspect]
     Active Substance: BISOPROLOL\BISOPROLOL FUMARATE
     Dosage: UNK
     Route: 065
  6. TICAGRELOR [Suspect]
     Active Substance: TICAGRELOR
     Dosage: UNK
     Route: 065

REACTIONS (3)
  - Cerebral haemorrhage [Unknown]
  - Petechiae [Unknown]
  - Epistaxis [Unknown]
